FAERS Safety Report 5334318-5 (Version None)
Quarter: 2007Q2

REPORT INFORMATION
  Report Type: 
  Country: None (occurrence: None)
  Receive Date: 20070525
  Receipt Date: 20070521
  Transmission Date: 20071010
  Serious: Yes (Death, Hospitalization, Other)
  Sender: FDA-Public Use
  Company Number: PHBS2007BR01868

PATIENT
  Age: 89 Year
  Sex: Female
  Weight: 49 kg

DRUGS (9)
  1. DIOVAN [Suspect]
     Indication: HYPERTENSION
     Dosage: 80 MG, QD
     Route: 048
  2. SLOW-K [Suspect]
     Indication: ELECTROLYTE SUBSTITUTION THERAPY
     Dosage: UNK, TID
     Route: 048
  3. LAMOTRIGINE [Concomitant]
     Indication: CONVULSION
     Dosage: 300 MG, QD
     Route: 048
  4. LASIX [Concomitant]
     Dosage: 0.5 TAB/DAY
     Route: 048
  5. MOTILIUM [Concomitant]
     Indication: GASTROOESOPHAGEAL REFLUX DISEASE
     Dosage: 10 MG, TID
     Route: 048
  6. OMEPRAZOLE [Concomitant]
     Dosage: 20 MG, QD
     Route: 048
  7. ANCORON [Concomitant]
     Indication: ARRHYTHMIA
     Dosage: 200 MG, QD
     Route: 048
  8. ANTICOAGULANTS [Concomitant]
     Dosage: 0.5 TAB/DAY
     Route: 048
  9. TRILEPTAL [Suspect]
     Indication: CONVULSION
     Dosage: 150 MG/DAY
     Route: 048

REACTIONS (9)
  - ARRHYTHMIA [None]
  - BLOOD POTASSIUM DECREASED [None]
  - DIARRHOEA [None]
  - HYPERTENSION [None]
  - PSEUDOMONAS INFECTION [None]
  - PULMONARY OEDEMA [None]
  - RESPIRATORY TRACT INFECTION [None]
  - SURGERY [None]
  - URINARY TRACT INFECTION [None]
